FAERS Safety Report 21346672 (Version 1)
Quarter: 2022Q3

REPORT INFORMATION
  Report Type: Spontaneous
  Country: CA (occurrence: CA)
  Receive Date: 20220918
  Receipt Date: 20220918
  Transmission Date: 20221027
  Serious: Yes (Other)
  Sender: FDA-Public Use
  Company Number: CA-JNJFOC-20220929113

PATIENT
  Age: 45 Year
  Sex: Male
  Weight: 111 kg

DRUGS (1)
  1. REMICADE [Suspect]
     Active Substance: INFLIXIMAB
     Indication: Crohn^s disease
     Route: 041

REACTIONS (7)
  - Gastrointestinal haemorrhage [Unknown]
  - Gastrointestinal ulcer haemorrhage [Unknown]
  - Impaired healing [Unknown]
  - Neoplasm skin [Unknown]
  - Haemoglobin decreased [Unknown]
  - Off label use [Unknown]
  - Intentional product use issue [Unknown]
